FAERS Safety Report 18326462 (Version 1)
Quarter: 2020Q3

REPORT INFORMATION
  Report Type: Spontaneous
  Country: CN (occurrence: CN)
  Receive Date: 20200929
  Receipt Date: 20200929
  Transmission Date: 20201103
  Serious: Yes (Other)
  Sender: FDA-Public Use
  Company Number: CN-PFIZER INC-2020369700

PATIENT
  Age: 29 Year
  Sex: Female

DRUGS (2)
  1. HEMABATE [Suspect]
     Active Substance: CARBOPROST TROMETHAMINE
     Indication: UTERINE ATONY
     Dosage: 250 UG
     Route: 030
  2. MISOPROSTOL. [Suspect]
     Active Substance: MISOPROSTOL
     Indication: UTERINE ATONY
     Dosage: .2 MG
     Route: 060

REACTIONS (4)
  - Epilepsy [Unknown]
  - Encephalitis viral [Unknown]
  - Intracranial infection [Unknown]
  - Disorganised speech [Unknown]
